FAERS Safety Report 5043074-X (Version None)
Quarter: 2006Q3

REPORT INFORMATION
  Report Type: 
  Country: None (occurrence: None)
  Receive Date: 20060705
  Receipt Date: 20060529
  Transmission Date: 20061208
  Serious: Yes (Hospitalization, Congenital Anomaly)
  Sender: FDA-Public Use
  Company Number: FR-AVENTIS-200611960FR

PATIENT
  Age: 30 Year
  Sex: Female

DRUGS (4)
  1. LANTUS [Suspect]
     Indication: DIABETES MELLITUS INSULIN-DEPENDENT
     Route: 058
     Dates: start: 20040622
  2. ORAL CONTRACEPTIVE PILLS [Concomitant]
     Dates: end: 20051101
  3. HUMALOG [Concomitant]
     Route: 058
     Dates: start: 20051101
  4. LEVOTHYROX [Concomitant]

REACTIONS (10)
  - ABORTION INDUCED [None]
  - ANAL ATRESIA [None]
  - ASCITES [None]
  - DIABETES MELLITUS INADEQUATE CONTROL [None]
  - DRUG EXPOSURE DURING PREGNANCY [None]
  - FOETAL DISORDER [None]
  - FOETAL MALFORMATION [None]
  - GASTROINTESTINAL MALFORMATION [None]
  - PREGNANCY ON ORAL CONTRACEPTIVE [None]
  - TREATMENT NONCOMPLIANCE [None]
